FAERS Safety Report 9770952 (Version 1)
Quarter: 2013Q4

REPORT INFORMATION
  Report Type: Spontaneous
  Country: US (occurrence: US)
  Receive Date: 20131218
  Receipt Date: 20131218
  Transmission Date: 20140711
  Serious: Yes (Death)
  Sender: FDA-Public Use
  Company Number: US-PFIZER INC-2013358813

PATIENT
  Sex: Female

DRUGS (4)
  1. ALPRAZOLAM [Suspect]
     Dosage: UNK
  2. HYDROMORPHONE [Interacting]
     Dosage: UNK
  3. HYDROCODONE [Interacting]
     Dosage: UNK
  4. ENDOCET [Interacting]
     Dosage: UNK

REACTIONS (1)
  - Drug interaction [Fatal]
